FAERS Safety Report 7208301-9 (Version None)
Quarter: 2011Q1

REPORT INFORMATION
  Report Type: 
  Country: None (occurrence: None)
  Receive Date: 20110104
  Receipt Date: 20101222
  Transmission Date: 20110831
  Serious: Yes (Hospitalization)
  Sender: FDA-Public Use
  Company Number: US-EISAI INC.-E7389-01110-SPO-US

PATIENT
  Sex: Female

DRUGS (1)
  1. HALAVEN [Suspect]
     Dosage: UNKNOWN
     Route: 041
     Dates: start: 20101206, end: 20101206

REACTIONS (2)
  - TONGUE BLISTERING [None]
  - ASTHENIA [None]
